FAERS Safety Report 7576061-8 (Version None)
Quarter: 2011Q2

REPORT INFORMATION
  Report Type: 
  Country: None (occurrence: None)
  Receive Date: 20110628
  Receipt Date: 20090930
  Transmission Date: 20111010
  Serious: Yes (Hospitalization, Other)
  Sender: FDA-Public Use
  Company Number: US-BAYER-2011-009981

PATIENT
  Age: 79 Year
  Sex: Female
  Weight: 78 kg

DRUGS (26)
  1. HEPARIN [Concomitant]
     Dosage: 10ML
     Route: 042
     Dates: start: 20050815
  2. DOBUTAMINE HCL [Concomitant]
     Dosage: UNK
     Dates: start: 20050815
  3. MILRINONE [Concomitant]
     Dosage: 2MG
     Route: 042
     Dates: start: 20050815, end: 20050815
  4. PLATELETS [Concomitant]
     Dosage: 2 PACKS
     Dates: start: 20050815
  5. DIOVAN [Concomitant]
     Dosage: 80 MG, QD
     Route: 048
  6. TRASYLOL [Suspect]
     Indication: MITRAL VALVE REPLACEMENT
     Dosage: TEST DOSE
     Route: 042
  7. FENTANYL [Concomitant]
     Dosage: 25MG
     Route: 042
     Dates: start: 20050815, end: 20050815
  8. RED BLOOD CELLS [Concomitant]
     Dosage: 1 UNIT
     Dates: start: 20050907
  9. LASIX [Concomitant]
     Dosage: UNK
     Dates: start: 20050815
  10. ACETYLSALICYLIC ACID SRT [Concomitant]
     Dosage: 81 MG, QD
     Route: 048
  11. MANNITOL [Concomitant]
     Dosage: UNK
     Dates: start: 20050815, end: 20050815
  12. VANCOMYCIN [Concomitant]
     Dosage: 500MG
     Route: 042
     Dates: start: 20050815
  13. METOPROLOL TARTRATE [Concomitant]
     Dosage: 25MG
     Route: 048
     Dates: start: 20050810, end: 20050812
  14. VASOPRESSIN [Concomitant]
     Dosage: UNK
     Dates: start: 20050815, end: 20050815
  15. DOPAMINE HCL [Concomitant]
     Dosage: UNK
     Dates: start: 20050815
  16. NITROGLYCERIN [Concomitant]
     Dosage: 50MG IN 250ML DEXTROSE IN WATER 50MG
     Route: 042
     Dates: start: 20050810, end: 20050812
  17. PLASMA [Concomitant]
     Dosage: 4 UNITS
     Dates: start: 20050815
  18. TRASYLOL [Suspect]
     Indication: CORONARY ARTERY BYPASS
     Dosage: LOADING DOSE - 10ML, THEN 50CC/HR
  19. TRASYLOL [Suspect]
     Dosage: UNK
     Dates: start: 20050815, end: 20050815
  20. FENTANYL [Concomitant]
     Indication: PAIN
     Dosage: 50 MCG QD
     Route: 062
  21. LASIX [Concomitant]
     Dosage: 40 MG, QD
     Route: 048
     Dates: start: 20050810
  22. HEPARIN [Concomitant]
     Dosage: 6,560 UNITS
     Route: 042
     Dates: start: 20050810
  23. PROTAMINE SULFATE [Concomitant]
     Dosage: 50MG
     Route: 042
     Dates: start: 20050815, end: 20050815
  24. RED BLOOD CELLS [Concomitant]
     Dosage: 4 UNITS
     Dates: start: 20050815
  25. INTEGRILIN [Concomitant]
     Dosage: 100ML2MCG/KG/MIN
     Route: 042
     Dates: start: 20050810, end: 20050811
  26. VALSARTAN [Concomitant]
     Dosage: 80MG
     Route: 048
     Dates: start: 20050810, end: 20050812

REACTIONS (13)
  - UNEVALUABLE EVENT [None]
  - EMOTIONAL DISTRESS [None]
  - ANHEDONIA [None]
  - MULTI-ORGAN FAILURE [None]
  - ANXIETY [None]
  - INJURY [None]
  - FEAR OF DEATH [None]
  - FEAR [None]
  - NERVOUSNESS [None]
  - RENAL FAILURE [None]
  - RENAL INJURY [None]
  - DEPRESSION [None]
  - PAIN [None]
